FAERS Safety Report 20549464 (Version 1)
Quarter: 2022Q1

REPORT INFORMATION
  Report Type: Spontaneous
  Country: US (occurrence: US)
  Receive Date: 20220303
  Receipt Date: 20220303
  Transmission Date: 20220423
  Serious: No
  Sender: FDA-Public Use
  Company Number: US-ESPERIONTHERAPEUTICS-2022USA00391

PATIENT
  Age: 64 Year
  Sex: Female
  Weight: 68.027 kg

DRUGS (1)
  1. NEXLIZET [Suspect]
     Active Substance: BEMPEDOIC ACID\EZETIMIBE
     Indication: Blood cholesterol abnormal
     Dosage: 1 DOSAGE FORM (180/10 MILLIGRAM), QD
     Route: 048
     Dates: start: 202008, end: 202010

REACTIONS (5)
  - Uterine disorder [Unknown]
  - Crepitations [Unknown]
  - Endometrial disorder [Unknown]
  - Fungal infection [Unknown]
  - Abdominal discomfort [Unknown]

NARRATIVE: CASE EVENT DATE: 20200101
